FAERS Safety Report 10399438 (Version 1)
Quarter: 2014Q1

REPORT INFORMATION
  Report Type: Spontaneous
  Country: US (occurrence: None)
  Receive Date: 20130815
  Receipt Date: 20130815
  Transmission Date: 20141002
  Serious: Yes (Other)
  Sender: FDA-Public Use
  Company Number: ADR-2012-02232

PATIENT
  Age: 46 Year
  Sex: Male

DRUGS (1)
  1. LIORESAL INTRATHECAL [Suspect]
     Indication: MUSCLE SPASTICITY
     Dosage: 50 MCG / DAY

REACTIONS (2)
  - Muscle spasticity [None]
  - Hypertonia [None]
